FAERS Safety Report 8074284-5 (Version None)
Quarter: 2012Q1

REPORT INFORMATION
  Report Type: 
  Country: None (occurrence: None)
  Receive Date: 20120126
  Receipt Date: 20120119
  Transmission Date: 20120608
  Serious: Yes (Death)
  Sender: FDA-Public Use
  Company Number: IE-MEDIMMUNE-MEDI-0014629

PATIENT
  Sex: Female

DRUGS (7)
  1. BUCCAL MIDAZOLAM [Concomitant]
     Route: 002
  2. ONDANSETRON HCL [Concomitant]
  3. AMEND [Concomitant]
  4. PRILOSEC [Concomitant]
  5. SYNAGIS [Suspect]
     Indication: METABOLIC DISORDER
     Route: 042
     Dates: start: 20111101, end: 20111101
  6. MORPHINE SULFATE [Concomitant]
  7. CHLORAL HYDRATE [Concomitant]

REACTIONS (1)
  - DEATH [None]
